FAERS Safety Report 6811361-8 (Version None)
Quarter: 2010Q2

REPORT INFORMATION
  Report Type: 
  Country: None (occurrence: None)
  Receive Date: 20100630
  Receipt Date: 20100120
  Transmission Date: 20101027
  Serious: No
  Sender: FDA-Public Use
  Company Number: US-AMGEN-KDL383186

PATIENT
  Sex: Female
  Weight: 61.3 kg

DRUGS (7)
  1. PROCRIT [Suspect]
     Indication: ANAEMIA
     Route: 058
     Dates: start: 20060101
  2. TOPROL-XL [Concomitant]
  3. DETROL [Concomitant]
  4. VICTAN [Concomitant]
  5. VICODIN [Concomitant]
  6. IRON [Concomitant]
  7. UNSPECIFIED PAIN MEDICATION [Concomitant]

REACTIONS (3)
  - BLISTER [None]
  - ERYTHEMA [None]
  - RASH [None]
